FAERS Safety Report 23870391 (Version 1)
Quarter: 2024Q2

REPORT INFORMATION
  Report Type: Other
  Country: US (occurrence: US)
  Receive Date: 20240518
  Receipt Date: 20240518
  Transmission Date: 20240716
  Serious: No
  Sender: FDA-Public Use
  Company Number: US-TRAVERE-2024TVT00466

PATIENT
  Age: 37 Year
  Sex: Female

DRUGS (1)
  1. FILSPARI [Suspect]
     Active Substance: SPARSENTAN
     Indication: IgA nephropathy
     Dosage: 200 MG 1 TABLET.
     Route: 048
     Dates: start: 202403

REACTIONS (4)
  - Polymenorrhoea [Unknown]
  - Vomiting [Unknown]
  - Acne [Unknown]
  - Drug dose titration not performed [Unknown]
